FAERS Safety Report 6537835-5 (Version None)
Quarter: 2010Q1

REPORT INFORMATION
  Report Type: 
  Country: None (occurrence: None)
  Receive Date: 20100114
  Receipt Date: 20100105
  Transmission Date: 20100710
  Serious: Yes (Other)
  Sender: FDA-Public Use
  Company Number: JP-ASTRAZENECA-2010SE01197

PATIENT
  Age: 65 Year
  Sex: Male

DRUGS (3)
  1. SEROQUEL [Suspect]
     Dosage: 25-50 MG/DAILY
     Route: 048
  2. LEVODOPA [Concomitant]
     Route: 048
  3. DOPAMINE AGONISTS [Concomitant]
     Route: 048

REACTIONS (1)
  - PNEUMONIA ASPIRATION [None]
